FAERS Safety Report 18058801 (Version 1)
Quarter: 2020Q3

REPORT INFORMATION
  Report Type: Spontaneous
  Country: US (occurrence: US)
  Receive Date: 20200722
  Receipt Date: 20200722
  Transmission Date: 20201103
  Serious: Yes (Hospitalization)
  Sender: FDA-Public Use
  Company Number: None

PATIENT
  Age: 34 Year
  Sex: Male

DRUGS (1)
  1. PREVYMIS [Suspect]
     Active Substance: LETERMOVIR
     Route: 048
     Dates: start: 202005

REACTIONS (4)
  - Therapy interrupted [None]
  - Viral infection [None]
  - Transplant [None]
  - Product use issue [None]

NARRATIVE: CASE EVENT DATE: 20200511
